FAERS Safety Report 7201998-9 (Version None)
Quarter: 2010Q4

REPORT INFORMATION
  Report Type: 
  Country: None (occurrence: None)
  Receive Date: 20101229
  Receipt Date: 20101216
  Transmission Date: 20110411
  Serious: Yes (Hospitalization)
  Sender: FDA-Public Use
  Company Number: US-WATSON-2010-16467

PATIENT
  Age: 29 Year
  Sex: Female

DRUGS (1)
  1. ISOFLURANE [Suspect]
     Indication: ANAESTHESIA
     Dosage: UNK

REACTIONS (3)
  - HYPERTHERMIA MALIGNANT [None]
  - MYOCARDIAL INFARCTION [None]
  - STRESS CARDIOMYOPATHY [None]
